FAERS Safety Report 12712003 (Version 1)
Quarter: 2016Q3

REPORT INFORMATION
  Report Type: Report from Study
  Country: US (occurrence: US)
  Receive Date: 20160902
  Receipt Date: 20160902
  Transmission Date: 20161109
  Serious: Yes (Other)
  Sender: FDA-Public Use
  Company Number: US-ROCHE-ITM201504IM014531

PATIENT
  Age: 57 Year
  Sex: Female
  Weight: 86.26 kg

DRUGS (2)
  1. ESBRIET [Suspect]
     Active Substance: PIRFENIDONE
     Dosage: 3 CAPSULES THRICE A DAY, TAKE WITH FOOD
     Route: 048
     Dates: start: 20150518, end: 20150628
  2. ESBRIET [Suspect]
     Active Substance: PIRFENIDONE
     Indication: IDIOPATHIC PULMONARY FIBROSIS
     Route: 048
     Dates: start: 20150420

REACTIONS (25)
  - Haemorrhagic disorder [Unknown]
  - Hepatic pain [Unknown]
  - Contusion [Unknown]
  - Dizziness [Unknown]
  - Heart rate increased [Unknown]
  - Nausea [Unknown]
  - Tremor [Unknown]
  - Erythema [Unknown]
  - Constipation [Not Recovered/Not Resolved]
  - Malaise [Unknown]
  - Feeling hot [Unknown]
  - Dyschezia [Unknown]
  - Hypertension [Unknown]
  - Insomnia [Unknown]
  - Rash pruritic [Unknown]
  - Decreased appetite [Unknown]
  - Pain in extremity [Unknown]
  - Bone pain [Unknown]
  - Haematochezia [Unknown]
  - Faeces hard [Unknown]
  - Abdominal pain [Unknown]
  - Abdominal pain upper [Unknown]
  - Weight decreased [Unknown]
  - Skin atrophy [Unknown]
  - Rash [Unknown]

NARRATIVE: CASE EVENT DATE: 20150422
